FAERS Safety Report 4966209-3 (Version None)
Quarter: 2006Q2

REPORT INFORMATION
  Report Type: 
  Country: None (occurrence: None)
  Receive Date: 20060407
  Receipt Date: 20050930
  Transmission Date: 20061013
  Serious: Yes (Hospitalization, Other)
  Sender: FDA-Public Use
  Company Number: US-MERCK-0510USA01359

PATIENT
  Age: 70 Year
  Sex: Male
  Weight: 83 kg

DRUGS (1)
  1. VIOXX [Suspect]
     Indication: PAIN IN EXTREMITY
     Route: 048
     Dates: start: 19990501, end: 20040930

REACTIONS (13)
  - ARTHRITIS [None]
  - CORONARY ARTERY DISEASE [None]
  - DEPRESSION [None]
  - DIASTOLIC DYSFUNCTION [None]
  - EJECTION FRACTION DECREASED [None]
  - GOUTY ARTHRITIS [None]
  - HYPERGLYCAEMIA [None]
  - HYPERTENSION [None]
  - HYPERTRIGLYCERIDAEMIA [None]
  - MYOCARDIAL INFARCTION [None]
  - POLYARTHRITIS [None]
  - RENAL FAILURE [None]
  - ULCER HAEMORRHAGE [None]
